FAERS Safety Report 11884555 (Version 1)
Quarter: 2016Q1

REPORT INFORMATION
  Report Type: Spontaneous
  Country: US (occurrence: US)
  Receive Date: 20160104
  Receipt Date: 20160104
  Transmission Date: 20160526
  Serious: No
  Sender: FDA-Public Use
  Company Number: US-ASTRAZENECA-2015SF30442

PATIENT

DRUGS (1)
  1. MERREM IV [Suspect]
     Active Substance: MEROPENEM
     Route: 042

REACTIONS (1)
  - Amylase increased [Unknown]
